FAERS Safety Report 12118981 (Version 3)
Quarter: 2018Q1

REPORT INFORMATION
  Report Type: Spontaneous
  Country: US (occurrence: US)
  Receive Date: 20160226
  Receipt Date: 20180115
  Transmission Date: 20180508
  Serious: No
  Sender: FDA-Public Use
  Company Number: US-PFIZER INC-2016078132

PATIENT
  Age: 62 Year
  Sex: Male
  Weight: 82 kg

DRUGS (19)
  1. GINKGO BILOBA [Concomitant]
     Active Substance: GINKGO
     Dosage: 120 MG, 1X/DAY
  2. LYRICA [Suspect]
     Active Substance: PREGABALIN
     Dosage: 400 MG, 1X/DAY (COMBINATION OF 100MG, 50MG, 25 MG, TOTAL OF 400MG)
  3. LYRICA [Suspect]
     Active Substance: PREGABALIN
     Dosage: 50 MG, 1X/DAY (25 MG: 2 MID-DAY DOSE)
  4. FOLIC ACID. [Concomitant]
     Active Substance: FOLIC ACID
     Dosage: 800 UG, 1X/DAY
  5. LYRICA [Suspect]
     Active Substance: PREGABALIN
     Dosage: 25 MG, 2X/DAY
     Route: 048
  6. PROSTATE SR [Concomitant]
     Indication: URINARY TRACT DISORDER
  7. WARFARIN [Concomitant]
     Active Substance: WARFARIN
     Indication: DEEP VEIN THROMBOSIS
     Dosage: 9 MG, 1X/DAY
     Route: 048
  8. LEVOTHYROXINE. [Concomitant]
     Active Substance: LEVOTHYROXINE
     Indication: THYROID DISORDER
     Dosage: 100 UG, 1X/DAY
  9. MEXILETINE [Concomitant]
     Active Substance: MEXILETINE
     Indication: HEADACHE
     Dosage: UNK
  10. THERALITH XR [Concomitant]
     Indication: SUPPLEMENTATION THERAPY
     Dosage: UNK
  11. LYRICA [Suspect]
     Active Substance: PREGABALIN
     Indication: MIGRAINE WITHOUT AURA
     Dosage: 200 MG, UNK (BEDTIME)
  12. PROSTATE SR [Concomitant]
     Indication: SUPPLEMENTATION THERAPY
     Dosage: UNK
  13. LYRICA [Suspect]
     Active Substance: PREGABALIN
     Indication: HEADACHE
     Dosage: 200 MG, 2X/DAY
  14. LYRICA [Suspect]
     Active Substance: PREGABALIN
     Dosage: 50 MG, DAILY [1 MID-DAY DOSE]
     Route: 048
  15. LYRICA [Suspect]
     Active Substance: PREGABALIN
     Dosage: 300 MG, DAILY(1 PO IN AM AND 2 PO QHS] [2 AT NIGHT 1 AT MORNING])
     Route: 048
  16. LYRICA [Suspect]
     Active Substance: PREGABALIN
     Dosage: UNK
  17. LISINOPRIL. [Concomitant]
     Active Substance: LISINOPRIL
     Indication: HEADACHE
     Dosage: UNK
  18. TIZANIDINE HCL [Concomitant]
     Active Substance: TIZANIDINE HYDROCHLORIDE
     Dosage: 4 MG, AS NEEDED [UP TO THREE/DAY]
  19. METOCLOPRAMIDE. [Concomitant]
     Active Substance: METOCLOPRAMIDE
     Dosage: 10 MG, AS NEEDED [UP TO THREE/DAY]

REACTIONS (7)
  - Intentional product use issue [Not Recovered/Not Resolved]
  - Speech disorder [Not Recovered/Not Resolved]
  - Nausea [Recovered/Resolved]
  - Product use in unapproved indication [Unknown]
  - Drug dose omission [Recovered/Resolved]
  - Headache [Not Recovered/Not Resolved]
  - Withdrawal syndrome [Unknown]

NARRATIVE: CASE EVENT DATE: 201601
